FAERS Safety Report 8314846-0 (Version None)
Quarter: 2012Q2

REPORT INFORMATION
  Report Type: 
  Country: None (occurrence: None)
  Receive Date: 20120426
  Receipt Date: 20120416
  Transmission Date: 20120825
  Serious: Yes (Other)
  Sender: FDA-Public Use
  Company Number: CA-JNJFOC-20120408690

PATIENT
  Sex: Female
  Weight: 84.3 kg

DRUGS (13)
  1. MICARDIS [Concomitant]
     Route: 065
  2. VENTOLIN [Concomitant]
     Route: 065
  3. VENTOLIN [Concomitant]
     Route: 065
  4. ALVESCO [Concomitant]
     Route: 065
  5. REMICADE [Suspect]
     Indication: CROHN'S DISEASE
     Route: 042
  6. LANTUS [Concomitant]
     Route: 065
  7. SEREVENT [Concomitant]
     Route: 065
  8. CODEINE [Concomitant]
     Route: 065
  9. METFORMIN HCL [Concomitant]
     Route: 065
  10. TRAZODONE HCL [Concomitant]
     Route: 065
  11. ACETYLSALICYLIC ACID SRT [Concomitant]
     Route: 065
  12. CRESTOR [Concomitant]
     Route: 065
  13. ADALAT [Concomitant]
     Route: 065

REACTIONS (2)
  - CROHN'S DISEASE [None]
  - DYSURIA [None]
